FAERS Safety Report 24149533 (Version 1)
Quarter: 2024Q3

REPORT INFORMATION
  Report Type: Spontaneous
  Country: US (occurrence: US)
  Receive Date: 20240730
  Receipt Date: 20240730
  Transmission Date: 20241016
  Serious: Yes (Hospitalization, Other)
  Sender: BRISTOL MYERS SQUIBB
  Company Number: US-BRISTOL-MYERS SQUIBB COMPANY-2024-119686

PATIENT
  Age: 74 Year
  Sex: Male
  Weight: 74.39 kg

DRUGS (1)
  1. REVLIMID [Suspect]
     Active Substance: LENALIDOMIDE
     Indication: Bone cancer
     Dosage: FREQUENCY: DAILY FOR 21 DAYS
     Route: 048

REACTIONS (2)
  - Failure to thrive [Unknown]
  - Off label use [Unknown]
